FAERS Safety Report 10679386 (Version 1)
Quarter: 2014Q4

REPORT INFORMATION
  Report Type: Report from Study
  Country: BR (occurrence: BR)
  Receive Date: 20141229
  Receipt Date: 20141229
  Transmission Date: 20150529
  Serious: Yes (Hospitalization)
  Sender: FDA-Public Use
  Company Number: BR-ABBVIE-14K-020-1324239-00

PATIENT
  Age: 35 Year
  Sex: Male

DRUGS (1)
  1. HUMIRA [Suspect]
     Active Substance: ADALIMUMAB
     Indication: ANKYLOSING SPONDYLITIS
     Route: 058

REACTIONS (4)
  - Drug dose omission [Unknown]
  - Memory impairment [Recovering/Resolving]
  - Rheumatic disorder [Recovering/Resolving]
  - Cerebral thrombosis [Recovering/Resolving]

NARRATIVE: CASE EVENT DATE: 201412
